FAERS Safety Report 6508084-1 (Version None)
Quarter: 2009Q4

REPORT INFORMATION
  Report Type: 
  Country: None (occurrence: None)
  Receive Date: 20091221
  Receipt Date: 20091217
  Transmission Date: 20100525
  Serious: Yes (Other)
  Sender: FDA-Public Use
  Company Number: GB-WYE-G01593808

PATIENT
  Age: 68 Year
  Sex: Male
  Weight: 78 kg

DRUGS (10)
  1. LANSOPRAZOLE [Suspect]
  2. AMIODARONE [Suspect]
  3. ASPIRIN [Suspect]
  4. PERINDOPRIL [Suspect]
  5. DIGOXIN [Suspect]
  6. EZETROL [Suspect]
     Route: 048
  7. FRUSEMIDE [Suspect]
  8. FRUSEMIDE [Suspect]
  9. ACIPIMOX [Suspect]
  10. BISOPROLOL [Suspect]

REACTIONS (13)
  - ATRIAL FIBRILLATION [None]
  - CARDIAC MURMUR [None]
  - DISSOCIATION [None]
  - DIZZINESS [None]
  - DYSPNOEA [None]
  - DYSPNOEA EXERTIONAL [None]
  - FATIGUE [None]
  - FEELING ABNORMAL [None]
  - LEFT VENTRICULAR DYSFUNCTION [None]
  - OEDEMA PERIPHERAL [None]
  - PARAESTHESIA [None]
  - VENOUS PRESSURE JUGULAR INCREASED [None]
  - VENTRICULAR TACHYCARDIA [None]
